FAERS Safety Report 4551159-7 (Version None)
Quarter: 2005Q1

REPORT INFORMATION
  Report Type: 
  Country: None (occurrence: None)
  Receive Date: 20050111
  Receipt Date: 20050111
  Transmission Date: 20050727
  Serious: Yes (Other)
  Sender: FDA-Public Use
  Company Number: None

PATIENT
  Age: 68 Year
  Sex: Male
  Weight: 78 kg

DRUGS (2)
  1. LISINOPRIL [Suspect]
     Indication: DIABETES MELLITUS
     Dosage: 10MG,10MG QD,ORAL
     Route: 048
     Dates: start: 20021213, end: 20041202
  2. LISINOPRIL [Suspect]
     Indication: HYPERTENSION
     Dosage: 10MG,10MG QD,ORAL
     Route: 048
     Dates: start: 20021213, end: 20041202

REACTIONS (1)
  - COUGH [None]
